FAERS Safety Report 8555809-X (Version None)
Quarter: 2012Q3

REPORT INFORMATION
  Report Type: 
  Country: None (occurrence: None)
  Receive Date: 20120801
  Receipt Date: 20120724
  Transmission Date: 20120928
  Serious: No
  Sender: FDA-Public Use
  Company Number: US-BIOGENIDEC-2012BI021858

PATIENT
  Sex: Female

DRUGS (2)
  1. TYSABRI [Suspect]
     Indication: MULTIPLE SCLEROSIS
     Route: 042
     Dates: start: 20081017, end: 20111107
  2. TYSABRI [Suspect]
     Route: 042
     Dates: start: 20120717

REACTIONS (3)
  - TENDON DISORDER [None]
  - MUSCULOSKELETAL PAIN [None]
  - BALANCE DISORDER [None]
